FAERS Safety Report 5449391-3 (Version None)
Quarter: 2007Q3

REPORT INFORMATION
  Report Type: 
  Country: None (occurrence: None)
  Receive Date: 20070911
  Receipt Date: 20070830
  Transmission Date: 20080115
  Serious: Yes (Other)
  Sender: FDA-Public Use
  Company Number: GB-PFIZER INC-2007073156

PATIENT
  Age: 61 Year
  Sex: Female
  Weight: 108 kg

DRUGS (5)
  1. EXEMESTANE [Suspect]
     Indication: BREAST CANCER
     Route: 048
  2. ADCAL-D3 [Concomitant]
  3. CODEINE PHOSPHATE AND ACETAMINOPHEN [Concomitant]
  4. DIAZEPAM [Concomitant]
  5. IBUPROFEN [Concomitant]
     Route: 048

REACTIONS (1)
  - WHEEZING [None]
